FAERS Safety Report 13742213 (Version 1)
Quarter: 2017Q3

REPORT INFORMATION
  Report Type: Spontaneous
  Country: US (occurrence: US)
  Receive Date: 20170711
  Receipt Date: 20170711
  Transmission Date: 20171127
  Serious: Yes (Other)
  Sender: FDA-Public Use
  Company Number: US-IPSEN BIOPHARMACEUTICALS, INC.-2011-3783

PATIENT
  Age: 56 Year
  Sex: Female
  Weight: 58 kg

DRUGS (6)
  1. DYSPORT [Suspect]
     Active Substance: ABOBOTULINUMTOXINA
     Indication: SKIN WRINKLING
     Dosage: NOT REPORTED
     Route: 065
  2. VICODIN [Concomitant]
     Active Substance: ACETAMINOPHEN\HYDROCODONE BITARTRATE
     Indication: PAIN
     Dosage: 2 TO 4 (5/500MG) TABLETS AS REQUIRED
     Route: 048
     Dates: start: 2004
  3. DYSPORT [Suspect]
     Active Substance: ABOBOTULINUMTOXINA
     Indication: SKIN WRINKLING
  4. ESTRADIOL. [Concomitant]
     Active Substance: ESTRADIOL
     Indication: PRODUCT USED FOR UNKNOWN INDICATION
     Route: 048
     Dates: start: 2001
  5. UNSPECIFIED NUMBING PRE-MEDICATION [Concomitant]
     Indication: PREMEDICATION
     Route: 061
     Dates: start: 200912, end: 200912
  6. DYSPORT [Suspect]
     Active Substance: ABOBOTULINUMTOXINA
     Indication: PRODUCT USE IN UNAPPROVED INDICATION

REACTIONS (5)
  - Pneumonia [None]
  - Drug ineffective [Unknown]
  - Injection site swelling [None]
  - Extranodal marginal zone B-cell lymphoma (MALT type) [None]
  - Memory impairment [Unknown]

NARRATIVE: CASE EVENT DATE: 200912
